FAERS Safety Report 15969608 (Version 2)
Quarter: 2019Q1

REPORT INFORMATION
  Report Type: Spontaneous
  Country: US (occurrence: US)
  Receive Date: 20190215
  Receipt Date: 20190327
  Transmission Date: 20190418
  Serious: Yes (Other)
  Sender: FDA-Public Use
  Company Number: US-ASTRAZENECA-2019SE23480

PATIENT
  Sex: Male
  Weight: 72.6 kg

DRUGS (2)
  1. SYMBICORT [Suspect]
     Active Substance: BUDESONIDE\FORMOTEROL FUMARATE DIHYDRATE
     Indication: CHRONIC OBSTRUCTIVE PULMONARY DISEASE
     Dosage: SOMETIMES TAKES IT 1 OR 2 PUFFS IN THE MORNING
     Route: 055
  2. SYMBICORT [Suspect]
     Active Substance: BUDESONIDE\FORMOTEROL FUMARATE DIHYDRATE
     Indication: CHRONIC OBSTRUCTIVE PULMONARY DISEASE
     Dosage: 160/4.5 MCG, 2 PUFFS, TWICE A DAY
     Route: 055
     Dates: start: 2009

REACTIONS (10)
  - Cerebrovascular accident [Unknown]
  - Product packaging quantity issue [Unknown]
  - Gait inability [Unknown]
  - Wrong technique in device usage process [Unknown]
  - Fall [Unknown]
  - Cervical vertebral fracture [Unknown]
  - Intentional product misuse [Unknown]
  - Dyspnoea [Unknown]
  - Haemochromatosis [Unknown]
  - Skull fracture [Unknown]
